FAERS Safety Report 7806138-0 (Version None)
Quarter: 2011Q4

REPORT INFORMATION
  Report Type: 
  Country: None (occurrence: None)
  Receive Date: 20111011
  Receipt Date: 20111005
  Transmission Date: 20120403
  Serious: Yes (Other)
  Sender: FDA-Public Use
  Company Number: US-PFIZER INC-2011238988

PATIENT
  Sex: Female
  Weight: 68.027 kg

DRUGS (8)
  1. TRIHEXYPHENIDYL [Concomitant]
     Dosage: 2 MG, 2X/DAY
     Route: 048
  2. PRISTIQ [Suspect]
     Indication: BIPOLAR I DISORDER
     Dosage: 50 MG, DAILY
     Route: 048
     Dates: start: 20110919, end: 20110921
  3. VILAZODONE HYDROCHLORIDE [Suspect]
     Indication: BIPOLAR I DISORDER
     Dosage: UNK
     Route: 048
     Dates: start: 20110701, end: 20110918
  4. VILAZODONE HYDROCHLORIDE [Suspect]
     Dosage: UNK
     Route: 048
     Dates: start: 20110101
  5. GEODON [Concomitant]
     Dosage: 160 MG, DAILY
     Route: 048
  6. CYMBALTA [Concomitant]
     Indication: BIPOLAR I DISORDER
     Dosage: UNK
     Route: 048
     Dates: end: 20110722
  7. METHYLFOLATE [Concomitant]
     Dosage: 50 MG, UNK
     Route: 048
  8. LAMOTRIGINE [Concomitant]
     Dosage: 200 MG, DAILY
     Route: 048

REACTIONS (1)
  - SUICIDAL IDEATION [None]
